FAERS Safety Report 21174294 (Version 3)
Quarter: 2024Q4

REPORT INFORMATION
  Report Type: Report from Study
  Country: JP (occurrence: JP)
  Receive Date: 20220804
  Receipt Date: 20241211
  Transmission Date: 20250115
  Serious: Yes (Death, Hospitalization, Other)
  Sender: BRISTOL-MYERS SQUIBB COMPANY
  Company Number: JP-CELGENE-JPN-20220108029

PATIENT
  Age: 77 Year
  Sex: Male
  Weight: 47.6 kg

DRUGS (3)
  1. BREYANZI [Suspect]
     Active Substance: LISOCABTAGENE MARALEUCEL
     Indication: Diffuse large B-cell lymphoma
     Dosage: TOTAL NUMBER OF CELLS ADMINISTERED: 10X10^7, TYPE OF ADMINISTERED CELLS: CD4-POSITIVE LYMPHOCYTES 5X
     Route: 041
     Dates: start: 20220113, end: 20220113
  2. FLUDARABINE [Concomitant]
     Active Substance: FLUDARABINE PHOSPHATE
     Indication: Diffuse large B-cell lymphoma
     Dosage: TOTAL DOSE: 72
     Dates: start: 20220108
  3. CYCLOPHOSPHAMIDE [Concomitant]
     Active Substance: CYCLOPHOSPHAMIDE
     Indication: Diffuse large B-cell lymphoma
     Dosage: TOTAL DOSE: 900
     Dates: start: 20220108

REACTIONS (12)
  - Cytokine release syndrome [Not Recovered/Not Resolved]
  - Cytomegalovirus infection reactivation [Recovered/Resolved]
  - Fungal infection [Unknown]
  - Organising pneumonia [Not Recovered/Not Resolved]
  - Pseudomonal sepsis [Fatal]
  - Acute respiratory distress syndrome [Unknown]
  - Respiratory failure [Fatal]
  - Escherichia bacteraemia [Unknown]
  - Pathogen resistance [Unknown]
  - Haemoglobin decreased [Unknown]
  - Platelet count decreased [Unknown]
  - Lymphocyte count decreased [Unknown]

NARRATIVE: CASE EVENT DATE: 20220125
